FAERS Safety Report 19327967 (Version 1)
Quarter: 2021Q2

REPORT INFORMATION
  Report Type: Spontaneous
  Country: DE (occurrence: DE)
  Receive Date: 20210528
  Receipt Date: 20210528
  Transmission Date: 20210717
  Serious: Yes (Hospitalization, Other)
  Sender: FDA-Public Use
  Company Number: DE-ACCORD-226132

PATIENT
  Age: 71 Year
  Sex: Female

DRUGS (9)
  1. APIXABAN [Concomitant]
     Active Substance: APIXABAN
     Dosage: 2.5 MG, 1?0?1, TABLETS
  2. CLOPIDOGREL [Concomitant]
     Active Substance: CLOPIDOGREL BISULFATE
     Dosage: 75 MG, 1?0?0?0,  TABLETS
  3. EVOLOCUMAB [Concomitant]
     Active Substance: EVOLOCUMAB
     Dosage: 140 MG / 14 DAYS, 1X, PRE?FILLED SYRINGES
  4. TORASEMIDE [Concomitant]
     Active Substance: TORSEMIDE
     Dosage: 10 MG, 1?0?0?0, TABLETS
  5. RAMIPRIL. [Suspect]
     Active Substance: RAMIPRIL
     Indication: PRODUCT USED FOR UNKNOWN INDICATION
     Dosage: 2.5 MG, 1?0?0?0, TABLETS
  6. COLECALCIFEROL [Concomitant]
     Active Substance: CHOLECALCIFEROL
     Dosage: 20,000 IU / EVERY 2 WEEKS, 1X, CAPSULES
  7. METOPROLOL. [Concomitant]
     Active Substance: METOPROLOL
     Dosage: 47.5 MG, 1?0?1?0, PROLONGED?RELEASE TABLETS
  8. ACETYLSALICYLIC ACID [Concomitant]
     Active Substance: ASPIRIN
     Dosage: 100 MG, 1?0?0?0, EFFERVESCENT TABLETS
  9. ALLOPURINOL. [Concomitant]
     Active Substance: ALLOPURINOL
     Dosage: 300 MG, 0.5?0?0?0, TABLETS

REACTIONS (6)
  - Hypotension [Recovered/Resolved]
  - Chest discomfort [Recovered/Resolved]
  - Product prescribing error [Unknown]
  - Nausea [Recovered/Resolved]
  - Circulatory collapse [Recovered/Resolved]
  - Cardiovascular disorder [Recovered/Resolved]
